FAERS Safety Report 5301930-9 (Version None)
Quarter: 2007Q2

REPORT INFORMATION
  Report Type: 
  Country: None (occurrence: None)
  Receive Date: 20070416
  Receipt Date: 20070416
  Transmission Date: 20071010
  Serious: Yes (Other)
  Sender: FDA-Public Use
  Company Number: None

PATIENT
  Age: 68 Year
  Sex: Female
  Weight: 58.0604 kg

DRUGS (1)
  1. AMBIEN CR [Suspect]
     Indication: INSOMNIA
     Dosage: 12 MG OR .12MG AS NEEDED AT BEDTI PO
     Route: 048
     Dates: start: 20070327, end: 20070327

REACTIONS (2)
  - AMNESIA [None]
  - SLEEP WALKING [None]
